FAERS Safety Report 9856361 (Version 1)
Quarter: 2014Q1

REPORT INFORMATION
  Report Type: Spontaneous
  Country: US (occurrence: US)
  Receive Date: 20140130
  Receipt Date: 20140130
  Transmission Date: 20141002
  Serious: No
  Sender: FDA-Public Use
  Company Number: US-PFIZER INC-2014023153

PATIENT
  Sex: 0

DRUGS (5)
  1. ADVIL [Suspect]
     Indication: HEADACHE
     Dosage: UNK
  2. ADVIL [Suspect]
     Indication: ARTHRALGIA
  3. ADVIL [Suspect]
     Indication: PAIN
     Dosage: UNK, EXPERIMENTING BY SLOWLY ADDING ANOTHER ONE TO THE BUNCH
  4. ADVIL [Suspect]
     Dosage: 6 DF, 1X/DAY
  5. ADVIL [Suspect]
     Dosage: UNK (6 AT ONCE, ANOTHER 1-2 AFTER EATING LUNCH DOESNT HAPPEN OFTEN)

REACTIONS (3)
  - Extra dose administered [Unknown]
  - Overdose [Unknown]
  - Drug effect incomplete [Unknown]
